FAERS Safety Report 8835774 (Version 1)
Quarter: 2012Q4

REPORT INFORMATION
  Report Type: 
  Country: US (occurrence: US)
  Receive Date: 20121011
  Receipt Date: 20121011
  Transmission Date: 20130627
  Serious: Yes (Death, Hospitalization)
  Sender: FDA-Public Use
  Company Number: US-GLAXOSMITHKLINE-A0920759A

PATIENT
  Age: 19 Year
  Sex: Female
  Weight: 75.3 kg

DRUGS (1)
  1. FLOLAN [Suspect]
     Indication: PULMONARY ARTERIAL HYPERTENSION
     Dosage: 88NGKM Continuous
     Route: 042
     Dates: start: 20090508

REACTIONS (4)
  - Death [Fatal]
  - Infection [Unknown]
  - Dyspnoea [Unknown]
  - Respiratory disorder [Unknown]
